FAERS Safety Report 8229685-9 (Version None)
Quarter: 2012Q1

REPORT INFORMATION
  Report Type: 
  Country: None (occurrence: None)
  Receive Date: 20120322
  Receipt Date: 20120319
  Transmission Date: 20120608
  Serious: Yes (Other)
  Sender: FDA-Public Use
  Company Number: PHHY2012BR024618

PATIENT
  Sex: Male

DRUGS (2)
  1. FORMOTEROL FUMARATE [Suspect]
  2. SPIRIVA [Concomitant]

REACTIONS (3)
  - DRUG INEFFECTIVE [None]
  - EMPHYSEMA [None]
  - DYSPNOEA [None]
